FAERS Safety Report 20110990 (Version 1)
Quarter: 2021Q4

REPORT INFORMATION
  Report Type: Spontaneous
  Country: GB (occurrence: GB)
  Receive Date: 20211124
  Receipt Date: 20211124
  Transmission Date: 20220303
  Serious: Yes (Hospitalization, Other)
  Sender: FDA-Public Use
  Company Number: GB-MHRA-EYC 00266039

PATIENT
  Age: 30 Year
  Sex: Male
  Weight: 58 kg

DRUGS (10)
  1. AMLODIPINE [Suspect]
     Active Substance: AMLODIPINE BESYLATE
     Indication: Ill-defined disorder
     Dosage: UNK
     Route: 048
     Dates: start: 20211109, end: 20211109
  2. ATORVASTATIN [Suspect]
     Active Substance: ATORVASTATIN
     Indication: Ill-defined disorder
     Dosage: UNK
     Route: 048
     Dates: start: 20211109, end: 20211109
  3. FUROSEMIDE [Suspect]
     Active Substance: FUROSEMIDE
     Indication: Ill-defined disorder
     Dosage: UNK
     Route: 048
     Dates: start: 20211109, end: 20211109
  4. BISOPROLOL [Suspect]
     Active Substance: BISOPROLOL
     Indication: Ill-defined disorder
     Dosage: UNK
     Route: 048
     Dates: start: 20211109, end: 20211109
  5. NORTRIPTYLINE [Suspect]
     Active Substance: NORTRIPTYLINE
     Indication: Ill-defined disorder
     Dosage: UNK
     Route: 048
     Dates: start: 20211109, end: 20211109
  6. SERTRALINE [Suspect]
     Active Substance: SERTRALINE HYDROCHLORIDE
     Indication: Ill-defined disorder
     Dosage: UNK
     Route: 048
     Dates: start: 20211109, end: 20211109
  7. PREGABALIN [Suspect]
     Active Substance: PREGABALIN
     Indication: Ill-defined disorder
     Dosage: UNK
     Route: 048
     Dates: start: 20211109, end: 20211109
  8. DIGOXIN [Suspect]
     Active Substance: DIGOXIN
     Indication: Ill-defined disorder
     Dosage: UNK
     Route: 048
     Dates: start: 20211109, end: 20211109
  9. DOXAZOSIN MESYLATE [Suspect]
     Active Substance: DOXAZOSIN MESYLATE
     Indication: Ill-defined disorder
     Dosage: UNK
     Route: 048
     Dates: start: 20211109, end: 20211109
  10. LANSOPRAZOLE [Suspect]
     Active Substance: LANSOPRAZOLE
     Indication: Ill-defined disorder
     Dosage: UNK
     Route: 048
     Dates: start: 20211109, end: 20211109

REACTIONS (2)
  - Syncope [Recovered/Resolved]
  - Hypotension [Recovered/Resolved]

NARRATIVE: CASE EVENT DATE: 20211109
